FAERS Safety Report 21526226 (Version 1)
Quarter: 2022Q4

REPORT INFORMATION
  Report Type: Other
  Country: None (occurrence: FR)
  Receive Date: 20221031
  Receipt Date: 20221031
  Transmission Date: 20230113
  Serious: Yes (Death)
  Sender: FDA-Public Use
  Company Number: FR-Nuvo Pharmaceuticals Inc-2134300

PATIENT
  Age: 40 Year
  Sex: Female

DRUGS (11)
  1. DIAZEPAM [Suspect]
     Active Substance: DIAZEPAM
     Indication: Product used for unknown indication
     Route: 065
  2. OXAZEPAM [Suspect]
     Active Substance: OXAZEPAM
     Route: 065
  3. LYRICA [Suspect]
     Active Substance: PREGABALIN
     Route: 065
  4. INSULIN DETEMIR [Suspect]
     Active Substance: INSULIN DETEMIR
     Route: 065
  5. OMEPRAZOLE [Suspect]
     Active Substance: OMEPRAZOLE
     Route: 065
  6. SITAGLIPTIN [Suspect]
     Active Substance: SITAGLIPTIN
     Route: 065
  7. TRAMADOL [Suspect]
     Active Substance: TRAMADOL
     Route: 065
  8. NORDAZEPAM [Suspect]
     Active Substance: NORDAZEPAM
     Route: 065
  9. LORMETAZEPAM [Suspect]
     Active Substance: LORMETAZEPAM
     Route: 065
  10. PHOLCODINE [Suspect]
     Active Substance: PHOLCODINE
     Route: 065
  11. OXOMEMAZINE [Suspect]
     Active Substance: OXOMEMAZINE
     Route: 065

REACTIONS (1)
  - Toxicity to various agents [Fatal]
